FAERS Safety Report 4913541-5 (Version None)
Quarter: 2006Q1

REPORT INFORMATION
  Report Type: 
  Country: None (occurrence: None)
  Receive Date: 20060214
  Receipt Date: 20060214
  Transmission Date: 20060701
  Serious: Yes (Hospitalization)
  Sender: FDA-Public Use
  Company Number: None

PATIENT
  Age: 72 Year
  Sex: Female
  Weight: 63.5036 kg

DRUGS (2)
  1. ADRIAMYCIN PFS [Suspect]
     Indication: BREAST CANCER
     Dosage: 108 MG IV
     Route: 042
  2. CYTOXAN [Suspect]
     Indication: BREAST CANCER
     Dosage: 1080 MG IV
     Route: 042

REACTIONS (3)
  - ASTHENIA [None]
  - FATIGUE [None]
  - HERPES ZOSTER [None]
